FAERS Safety Report 15325368 (Version 1)
Quarter: 2018Q3

REPORT INFORMATION
  Report Type: Spontaneous
  Country: FR (occurrence: FR)
  Receive Date: 20180828
  Receipt Date: 20180828
  Transmission Date: 20181010
  Serious: Yes (Death, Life-Threatening, Hospitalization, Disabling, Other)
  Sender: FDA-Public Use
  Company Number: FR-009507513-1808FRA008815

PATIENT
  Age: 82 Year
  Sex: Female
  Weight: 57 kg

DRUGS (3)
  1. YERVOY [Suspect]
     Active Substance: IPILIMUMAB
     Indication: MALIGNANT MELANOMA
     Dosage: 3 MG/KG, UNK
     Route: 042
     Dates: start: 20160108, end: 20160129
  2. LEVOTHYROX [Concomitant]
     Active Substance: LEVOTHYROXINE
     Indication: PRODUCT USED FOR UNKNOWN INDICATION
     Route: 048
  3. PEMBROLIZUMAB. [Suspect]
     Active Substance: PEMBROLIZUMAB
     Indication: MALIGNANT MELANOMA
     Dosage: 2 MG/KG, UNK
     Route: 042
     Dates: start: 20150913, end: 201511

REACTIONS (13)
  - Hypothyroidism [Unknown]
  - Hepatitis [Recovered/Resolved]
  - Dementia [Unknown]
  - Hyperthyroidism [Unknown]
  - Rash [Unknown]
  - Rash maculo-papular [Recovered/Resolved]
  - Amnesia [Unknown]
  - Fatigue [Unknown]
  - Diarrhoea [Unknown]
  - Fulminant type 1 diabetes mellitus [Unknown]
  - Acute kidney injury [Recovered/Resolved]
  - Nephropathy [Unknown]
  - Pulmonary embolism [Fatal]

NARRATIVE: CASE EVENT DATE: 20160208
